FAERS Safety Report 25263223 (Version 1)
Quarter: 2025Q2

REPORT INFORMATION
  Report Type: Report from Study
  Country: CN (occurrence: CN)
  Receive Date: 20250502
  Receipt Date: 20250502
  Transmission Date: 20250717
  Serious: Yes (Other)
  Sender: ACCORD
  Company Number: CN-Accord-481753

PATIENT
  Age: 65 Year
  Sex: Male

DRUGS (2)
  1. CISPLATIN [Suspect]
     Active Substance: CISPLATIN
     Indication: Small cell lung cancer limited stage
     Dosage: TWO CYCLES
  2. ETOPOSIDE [Suspect]
     Active Substance: ETOPOSIDE
     Indication: Small cell lung cancer limited stage
     Dosage: TWO CYCLES

REACTIONS (2)
  - Agranulocytosis [Unknown]
  - Therapy partial responder [Unknown]
